FAERS Safety Report 24890694 (Version 1)
Quarter: 2025Q1

REPORT INFORMATION
  Report Type: Spontaneous
  Country: US (occurrence: US)
  Receive Date: 20250127
  Receipt Date: 20250127
  Transmission Date: 20250408
  Serious: No
  Sender: BRISTOL-MYERS SQUIBB COMPANY
  Company Number: US-BRISTOL-MYERS SQUIBB COMPANY-2025-007259

PATIENT
  Age: 60 Year
  Sex: Male

DRUGS (2)
  1. POMALYST [Suspect]
     Active Substance: POMALIDOMIDE
     Indication: Kaposi^s sarcoma
     Route: 048
     Dates: start: 202411
  2. POMALYST [Suspect]
     Active Substance: POMALIDOMIDE
     Dosage: POMALYST STRENGTH IS 4 MG
     Route: 048
     Dates: start: 202411

REACTIONS (2)
  - Diarrhoea [Unknown]
  - Peripheral swelling [Unknown]
